FAERS Safety Report 12891098 (Version 1)
Quarter: 2016Q4

REPORT INFORMATION
  Report Type: Spontaneous
  Country: US (occurrence: US)
  Receive Date: 20161025
  Receipt Date: 20161025
  Transmission Date: 20170207
  Serious: No
  Sender: FDA-Public Use
  Company Number: None

PATIENT
  Age: 26 Year
  Sex: Female

DRUGS (1)
  1. STELARA [Suspect]
     Active Substance: USTEKINUMAB
     Indication: PSORIATIC ARTHROPATHY
     Dosage: 90MG; 90MG AT WEEK 0 AND 4 AND THEN; SUBCUTANEOUSLY
     Route: 058
     Dates: start: 20160901

REACTIONS (1)
  - Depression [None]

NARRATIVE: CASE EVENT DATE: 20160901
